FAERS Safety Report 19145429 (Version 1)
Quarter: 2021Q2

REPORT INFORMATION
  Report Type: Spontaneous
  Country: US (occurrence: US)
  Receive Date: 20210416
  Receipt Date: 20210416
  Transmission Date: 20210717
  Serious: Yes (Other)
  Sender: FDA-Public Use
  Company Number: None

PATIENT
  Age: 49 Year
  Sex: Female
  Weight: 86.85 kg

DRUGS (8)
  1. SUTAB [Suspect]
     Active Substance: MAGNESIUM SULFATE\POTASSIUM CHLORIDE\SODIUM SULFATE
     Indication: BOWEL PREPARATION
     Dosage: ?          QUANTITY:24 CAPSULE(S);OTHER FREQUENCY:DAY1DOS1DAY2DOS2;?
     Route: 048
     Dates: start: 20210323, end: 20210324
  2. CLONAZEPAM. [Concomitant]
     Active Substance: CLONAZEPAM
  3. SERTRALINE [Concomitant]
     Active Substance: SERTRALINE HYDROCHLORIDE
  4. CENTRUM MINIS WOMEN 50+ MULTIVITAMIN/MULTIMINERAL [Concomitant]
  5. SPRING VALLEY WOMENS PROBIOTIC [Concomitant]
  6. SUTAB [Suspect]
     Active Substance: MAGNESIUM SULFATE\POTASSIUM CHLORIDE\SODIUM SULFATE
     Indication: COLONOSCOPY
     Dosage: ?          QUANTITY:24 CAPSULE(S);OTHER FREQUENCY:DAY1DOS1DAY2DOS2;?
     Route: 048
     Dates: start: 20210323, end: 20210324
  7. PANTOPRAZOLE [Concomitant]
     Active Substance: PANTOPRAZOLE
  8. SPRING VALLEY VITAMIN D3 [Concomitant]

REACTIONS (5)
  - Chills [None]
  - Headache [None]
  - Nausea [None]
  - Balance disorder [None]
  - Malaise [None]

NARRATIVE: CASE EVENT DATE: 20210323
